FAERS Safety Report 16839856 (Version 9)
Quarter: 2020Q2

REPORT INFORMATION
  Report Type: Spontaneous
  Country: US (occurrence: US)
  Receive Date: 20190923
  Receipt Date: 20200403
  Transmission Date: 20200713
  Serious: Yes (Other)
  Sender: FDA-Public Use
  Company Number: US-PFIZER INC-2019408573

PATIENT
  Age: 68 Year
  Sex: Male
  Weight: 50.1 kg

DRUGS (3)
  1. PERCOCET [Concomitant]
     Active Substance: ACETAMINOPHEN\OXYCODONE HYDROCHLORIDE
     Indication: PAIN
     Dosage: UNK
  2. IBRANCE [Suspect]
     Active Substance: PALBOCICLIB
     Indication: OESOPHAGEAL CARCINOMA
     Dosage: 125 MG, CYCLIC (DAILY FOR 21 DAYS OF 28 DAYS)
     Route: 048
  3. DURAGESIC [Concomitant]
     Active Substance: FENTANYL
     Dosage: UNK [12.5 MCG/H]

REACTIONS (12)
  - Pneumonia [Recovered/Resolved]
  - Decreased appetite [Unknown]
  - Cough [Unknown]
  - Skin lesion [Unknown]
  - Back pain [Unknown]
  - Off label use [Unknown]
  - Weight decreased [Unknown]
  - Product use in unapproved indication [Unknown]
  - White blood cell count decreased [Unknown]
  - Dyspnoea [Unknown]
  - Neoplasm progression [Unknown]
  - Dysphonia [Unknown]
